FAERS Safety Report 23387510 (Version 3)
Quarter: 2024Q2

REPORT INFORMATION
  Report Type: Spontaneous
  Country: US (occurrence: US)
  Receive Date: 20240110
  Receipt Date: 20240404
  Transmission Date: 20240716
  Serious: Yes (Other)
  Sender: FDA-Public Use
  Company Number: US-BRISTOL-MYERS SQUIBB COMPANY-2024-003671

PATIENT
  Age: 77 Year
  Sex: Female

DRUGS (1)
  1. POMALYST [Suspect]
     Active Substance: POMALIDOMIDE
     Indication: Plasma cell myeloma
     Dosage: FREQUENCY: TAKE 1 CAPSULE BY MOUTH 3 TIMES A WEEK EVERY MONDAY, WEDNESDAY, AND FRIDAY FOR 3 WEEKS ON
     Route: 048

REACTIONS (4)
  - Off label use [Unknown]
  - Diabetes mellitus [Recovering/Resolving]
  - Product dose omission issue [Unknown]
  - Fall [Unknown]
